FAERS Safety Report 5086804-3 (Version None)
Quarter: 2006Q3

REPORT INFORMATION
  Report Type: 
  Country: None (occurrence: None)
  Receive Date: 20060823
  Receipt Date: 20060817
  Transmission Date: 20061208
  Serious: Yes (Hospitalization)
  Sender: FDA-Public Use
  Company Number: US-SANOFI-SYNTHELABO-F03200600188

PATIENT
  Age: 58 Year
  Sex: Male

DRUGS (12)
  1. FLUDARABINE [Suspect]
     Indication: CHRONIC LYMPHOCYTIC LEUKAEMIA TRANSFORMATION
     Dosage: 30 MG/M2, DAYS 2-3
     Route: 042
     Dates: start: 20060407, end: 20060408
  2. CYTARABINE [Suspect]
     Indication: CHRONIC LYMPHOCYTIC LEUKAEMIA TRANSFORMATION
     Dosage: 1 G/M2 IV, DAYS 2-3
     Route: 042
     Dates: start: 20060407, end: 20060408
  3. RITUXAN [Suspect]
     Indication: CHRONIC LYMPHOCYTIC LEUKAEMIA TRANSFORMATION
     Dosage: 375 MG/M2 IV, DAY 1
     Route: 042
     Dates: start: 20060406, end: 20060406
  4. OXALIPLATIN [Suspect]
     Indication: CHRONIC LYMPHOCYTIC LEUKAEMIA TRANSFORMATION
     Dosage: 25 MG/M2 IV, DAY 1-4
     Route: 042
     Dates: start: 20060406, end: 20060409
  5. COMPAZINE [Concomitant]
     Dosage: UNK
     Route: 065
  6. DARVON [Concomitant]
     Dosage: UNK
     Route: 048
  7. PROTONIX [Concomitant]
     Dosage: UNK
     Route: 065
  8. HUMULIN 70/30 [Concomitant]
     Dosage: 35 UNITS IN THE MORNING AND 25 UNITS IN THE EVENING
     Route: 058
  9. VALTREX [Concomitant]
     Dosage: UNK
     Route: 048
  10. VFEND [Concomitant]
     Dosage: UNK
     Route: 065
  11. BACTRIM [Concomitant]
     Dosage: UNK
     Route: 065
  12. LEVAQUIN [Concomitant]
     Dosage: UNK
     Route: 065

REACTIONS (1)
  - RETINAL HAEMORRHAGE [None]
